FAERS Safety Report 9142950 (Version 1)
Quarter: 2013Q1

REPORT INFORMATION
  Report Type: Spontaneous
  Country: US (occurrence: US)
  Receive Date: 20130306
  Receipt Date: 20130306
  Transmission Date: 20140127
  Serious: No
  Sender: FDA-Public Use
  Company Number: US-PFIZER INC-2013076383

PATIENT
  Sex: 0

DRUGS (2)
  1. LYRICA [Suspect]
     Indication: FIBROMYALGIA
     Dosage: TWO PILLS EVERY DAY
     Dates: end: 201301
  2. LYRICA [Suspect]
     Indication: SJOGREN^S SYNDROME

REACTIONS (3)
  - Hypoaesthesia [Unknown]
  - Pain [Recovering/Resolving]
  - Off label use [Unknown]
